FAERS Safety Report 6571856-1 (Version None)
Quarter: 2010Q1

REPORT INFORMATION
  Report Type: 
  Country: None (occurrence: None)
  Receive Date: 20100205
  Receipt Date: 20100128
  Transmission Date: 20100710
  Serious: Yes (Hospitalization, Other)
  Sender: FDA-Public Use
  Company Number: US-ASTRAZENECA-2010SE04008

PATIENT
  Age: 26 Year
  Sex: Female
  Weight: 45.8 kg

DRUGS (12)
  1. SEROQUEL [Suspect]
     Indication: ANXIETY
     Dosage: 25 MG TO 600 MG DAILY
     Route: 048
     Dates: start: 20030401, end: 20080701
  2. SEROQUEL [Suspect]
     Indication: OBSESSIVE-COMPULSIVE DISORDER
     Dosage: 25 MG TO 600 MG DAILY
     Route: 048
     Dates: start: 20030401, end: 20080701
  3. SEROQUEL [Suspect]
     Indication: ASPERGER'S DISORDER
     Dosage: 25 MG TO 600 MG DAILY
     Route: 048
     Dates: start: 20030401, end: 20080701
  4. RISPERDAL [Concomitant]
     Dosage: 1 MG TO  2MG ONCE A DAY
     Dates: start: 19990101, end: 20020101
  5. EFFEXOR [Concomitant]
     Dates: start: 19990101, end: 20020101
  6. ZOLOFT [Concomitant]
     Dates: start: 19990101, end: 20020101
  7. REMERON [Concomitant]
     Dates: start: 19990101, end: 20020101
  8. LEXAPRO [Concomitant]
     Indication: DEPRESSION
  9. TRILAFON [Concomitant]
     Dates: start: 20021201, end: 20030101
  10. PROVACHOL [Concomitant]
     Indication: BLOOD CHOLESTEROL INCREASED
     Dates: start: 20040101
  11. PROVACHOL [Concomitant]
     Indication: HYPERLIPIDAEMIA
     Dates: start: 20040101
  12. PROVACHOL [Concomitant]
     Indication: BLOOD TRIGLYCERIDES INCREASED
     Dates: start: 20040101

REACTIONS (10)
  - BLOOD CHOLESTEROL INCREASED [None]
  - BLOOD TRIGLYCERIDES INCREASED [None]
  - CONSTIPATION [None]
  - DIABETIC COMPLICATION [None]
  - HYPERLIPIDAEMIA [None]
  - INSULIN RESISTANCE [None]
  - IRRITABLE BOWEL SYNDROME [None]
  - OBESITY [None]
  - RECTAL PROLAPSE [None]
  - TYPE 2 DIABETES MELLITUS [None]
